FAERS Safety Report 15251656 (Version 1)
Quarter: 2018Q3

REPORT INFORMATION
  Report Type: Spontaneous
  Country: IE (occurrence: IE)
  Receive Date: 20180807
  Receipt Date: 20180807
  Transmission Date: 20181010
  Serious: Yes (Other)
  Sender: FDA-Public Use
  Company Number: IE-LPDUSPRD-20181354

PATIENT
  Age: 38 Year
  Sex: Female
  Weight: 78 kg

DRUGS (1)
  1. FERINJECT [Suspect]
     Active Substance: FERRIC CARBOXYMALTOSE
     Dosage: 1000 MG,1 IN 1 WEEK
     Route: 042
     Dates: start: 20180703, end: 20180703

REACTIONS (2)
  - Ear discomfort [Unknown]
  - Swelling [Unknown]

NARRATIVE: CASE EVENT DATE: 20180703
